FAERS Safety Report 25760563 (Version 2)
Quarter: 2025Q3

REPORT INFORMATION
  Report Type: Spontaneous
  Country: US (occurrence: US)
  Receive Date: 20250904
  Receipt Date: 20250925
  Transmission Date: 20251020
  Serious: No
  Sender: SANOFI AVENTIS
  Company Number: US-SA-2025SA263680

PATIENT
  Age: 37 Year
  Sex: Female

DRUGS (6)
  1. DUPIXENT [Suspect]
     Active Substance: DUPILUMAB
     Indication: Dermatitis atopic
     Dosage: 300 MG, QOW
     Route: 058
     Dates: start: 201706
  2. DUPIXENT [Suspect]
     Active Substance: DUPILUMAB
     Indication: Chronic spontaneous urticaria
  3. TACROLIMUS [Suspect]
     Active Substance: TACROLIMUS
     Indication: Eczema
  4. TACROLIMUS [Suspect]
     Active Substance: TACROLIMUS
     Indication: Rash erythematous
  5. TACROLIMUS [Suspect]
     Active Substance: TACROLIMUS
     Indication: Pruritus
  6. TACROLIMUS [Suspect]
     Active Substance: TACROLIMUS
     Indication: Skin burning sensation

REACTIONS (8)
  - Mycotic allergy [Unknown]
  - Food allergy [Unknown]
  - Eczema [Unknown]
  - Rash erythematous [Unknown]
  - Pruritus [Unknown]
  - Skin burning sensation [Unknown]
  - Drug hypersensitivity [Unknown]
  - Therapeutic response shortened [Unknown]

NARRATIVE: CASE EVENT DATE: 20250801
